FAERS Safety Report 9723115 (Version 1)
Quarter: 2013Q4

REPORT INFORMATION
  Report Type: Spontaneous
  Country: US (occurrence: None)
  Receive Date: 20131127
  Receipt Date: 20131127
  Transmission Date: 20140711
  Serious: Yes (Hospitalization)
  Sender: FDA-Public Use
  Company Number: None

PATIENT
  Age: 71 Year
  Sex: Male
  Weight: 128.1 kg

DRUGS (2)
  1. CEFPODOXIME PROXETIL [Suspect]
     Indication: PROSTATITIS
     Route: 048
     Dates: start: 20130831, end: 20130930
  2. SULFAMETHOXAZOLE/TRIMETHOPRIM [Suspect]
     Indication: PROSTATITIS
     Route: 048
     Dates: start: 20130611, end: 20130716

REACTIONS (4)
  - Diarrhoea [None]
  - Dehydration [None]
  - Renal failure acute [None]
  - Clostridium difficile colitis [None]
